FAERS Safety Report 15536337 (Version 3)
Quarter: 2018Q4

REPORT INFORMATION
  Report Type: Spontaneous
  Country: GB (occurrence: GB)
  Receive Date: 20181022
  Receipt Date: 20181022
  Transmission Date: 20190205
  Serious: Yes (Other)
  Sender: FDA-Public Use
  Company Number: PHHY2017GB034982

PATIENT
  Age: 31 Year
  Sex: Male

DRUGS (8)
  1. PREDNISOLONE. [Suspect]
     Active Substance: PREDNISOLONE
     Indication: IGA NEPHROPATHY
     Dosage: 5 G, QD
     Route: 048
  2. CYCLOPHOSPHAMIDE. [Suspect]
     Active Substance: CYCLOPHOSPHAMIDE
     Indication: IGA NEPHROPATHY
     Dosage: 2 FURTHER DOSES OF (MONTH 2 + 3)
     Route: 042
  3. METHYLPREDNISOLONE. [Suspect]
     Active Substance: METHYLPREDNISOLONE
     Indication: IGA NEPHROPATHY
     Route: 042
  4. CYCLOPHOSPHAMIDE. [Suspect]
     Active Substance: CYCLOPHOSPHAMIDE
     Indication: PULMONARY RENAL SYNDROME
  5. RITUXIMAB. [Suspect]
     Active Substance: RITUXIMAB
     Indication: PULMONARY RENAL SYNDROME
     Dosage: 2 DOSES (MONTH 4 + 5 POST -PRESENTATION)
     Route: 065
  6. METHYLPREDNISOLONE. [Suspect]
     Active Substance: METHYLPREDNISOLONE
     Indication: PULMONARY RENAL SYNDROME
     Route: 042
  7. PREDNISOLONE. [Suspect]
     Active Substance: PREDNISOLONE
     Indication: PULMONARY RENAL SYNDROME
  8. MYCOPHENOLATE MOFETIL. [Suspect]
     Active Substance: MYCOPHENOLATE MOFETIL
     Indication: PULMONARY RENAL SYNDROME
     Dosage: 500 MG, QD
     Route: 065

REACTIONS (6)
  - Off label use [Unknown]
  - Neutropenia [Recovered/Resolved]
  - Left ventricular dysfunction [Recovering/Resolving]
  - Pyrexia [Recovering/Resolving]
  - Cardiomyopathy [Recovered/Resolved]
  - Viral cardiomyopathy [Recovering/Resolving]
